FAERS Safety Report 12070573 (Version 1)
Quarter: 2016Q1

REPORT INFORMATION
  Report Type: Spontaneous
  Country: JP (occurrence: JP)
  Receive Date: 20160211
  Receipt Date: 20160211
  Transmission Date: 20160526
  Serious: No
  Sender: FDA-Public Use
  Company Number: JP-JNJFOC-20160209650

PATIENT
  Age: 35 Year
  Sex: Male

DRUGS (6)
  1. LEVOCARNITINE. [Concomitant]
     Active Substance: LEVOCARNITINE
     Route: 065
  2. HYDANTOL [Concomitant]
     Active Substance: PHENYTOIN SODIUM
     Route: 048
  3. TOPINA [Suspect]
     Active Substance: TOPIRAMATE
     Indication: EPILEPSY
     Route: 048
  4. ALOSENN [Concomitant]
     Active Substance: SENNA LEAF
     Route: 065
  5. PHENYTOIN SODIUM. [Concomitant]
     Active Substance: PHENYTOIN SODIUM
     Route: 048
  6. SODIUM VALPROATE [Suspect]
     Active Substance: VALPROATE SODIUM
     Indication: PRODUCT USED FOR UNKNOWN INDICATION
     Route: 048

REACTIONS (1)
  - Ammonia increased [Unknown]

NARRATIVE: CASE EVENT DATE: 20160115
